FAERS Safety Report 6781981-8 (Version None)
Quarter: 2010Q2

REPORT INFORMATION
  Report Type: 
  Country: None (occurrence: None)
  Receive Date: 20100615
  Receipt Date: 20100604
  Transmission Date: 20101027
  Serious: Yes (Congenital Anomaly)
  Sender: FDA-Public Use
  Company Number: LEO-2010-00497

PATIENT

DRUGS (1)
  1. DOVONEX [Suspect]
     Indication: DRUG EXPOSURE DURING PREGNANCY
     Dosage: TRANSPLACENTAL
     Route: 064

REACTIONS (4)
  - CLEFT LIP AND PALATE [None]
  - CONGENITAL ANOMALY [None]
  - JAW DISORDER [None]
  - MATERNAL DRUGS AFFECTING FOETUS [None]
